FAERS Safety Report 22208524 (Version 10)
Quarter: 2025Q2

REPORT INFORMATION
  Report Type: Report from Study
  Country: CA (occurrence: CA)
  Receive Date: 20230413
  Receipt Date: 20250624
  Transmission Date: 20250716
  Serious: Yes (Other)
  Sender: TAKEDA
  Company Number: CA-TAKEDA-2023TUS037591

PATIENT
  Sex: Female

DRUGS (6)
  1. VEDOLIZUMAB [Suspect]
     Active Substance: VEDOLIZUMAB
     Indication: Crohn^s disease
  2. VEDOLIZUMAB [Suspect]
     Active Substance: VEDOLIZUMAB
  3. VEDOLIZUMAB [Suspect]
     Active Substance: VEDOLIZUMAB
     Indication: Crohn^s disease
     Dosage: 108 MILLIGRAM, Q2WEEKS
     Dates: start: 20220929
  4. VEDOLIZUMAB [Suspect]
     Active Substance: VEDOLIZUMAB
     Dosage: 108 MILLIGRAM, Q2WEEKS
  5. PANTOPRAZOLE SODIUM [Suspect]
     Active Substance: PANTOPRAZOLE SODIUM
     Indication: Product used for unknown indication
  6. IMURAN [Concomitant]
     Active Substance: AZATHIOPRINE

REACTIONS (11)
  - Crohn^s disease [Unknown]
  - Necrosis [Unknown]
  - Incisional hernia [Unknown]
  - Anastomotic ulcer [Unknown]
  - Drug level decreased [Unknown]
  - Product supply issue [Unknown]
  - Malaise [Unknown]
  - Diarrhoea [Unknown]
  - Umbilical hernia [Unknown]
  - Abdominal mass [Unknown]
  - Inappropriate schedule of product administration [Unknown]
